FAERS Safety Report 9147821 (Version 1)
Quarter: 2013Q1

REPORT INFORMATION
  Report Type: Spontaneous
  Country: DE (occurrence: DE)
  Receive Date: 20130307
  Receipt Date: 20130307
  Transmission Date: 20140127
  Serious: Yes (Hospitalization)
  Sender: FDA-Public Use
  Company Number: DE-ELI_LILLY_AND_COMPANY-DE201302009063

PATIENT
  Age: 55 Year
  Sex: Female

DRUGS (3)
  1. GEMZAR [Suspect]
     Indication: SMALL INTESTINE CARCINOMA
     Dosage: 1000 MG/M2, UNK
     Route: 042
  2. GEMZAR [Suspect]
     Dosage: 700 MG/M2, DOSE REDUCED TO 70%
  3. VOTUM [Concomitant]

REACTIONS (7)
  - Haemolytic uraemic syndrome [Not Recovered/Not Resolved]
  - Pleural effusion [Not Recovered/Not Resolved]
  - Pericardial effusion [Not Recovered/Not Resolved]
  - Ascites [Not Recovered/Not Resolved]
  - Vomiting [Unknown]
  - Neutropenia [Unknown]
  - Off label use [Unknown]
